FAERS Safety Report 6110378-9 (Version None)
Quarter: 2009Q1

REPORT INFORMATION
  Report Type: 
  Country: None (occurrence: None)
  Receive Date: 20090309
  Receipt Date: 20090309
  Transmission Date: 20090719
  Serious: Yes (Life-Threatening, Hospitalization, Disabling)
  Sender: FDA-Public Use
  Company Number: None

PATIENT
  Sex: Male
  Weight: 133 kg

DRUGS (17)
  1. AVASTIN [Suspect]
     Indication: SMALL CELL LUNG CANCER STAGE UNSPECIFIED
     Dosage: 1900 MG Q3 WEEKS IV
     Route: 042
     Dates: start: 20081229, end: 20090121
  2. PLAVIX [Concomitant]
  3. FOLIC ACID [Concomitant]
  4. PROPRANOLOL SR [Concomitant]
  5. GLIPIZIDE [Concomitant]
  6. SERTRALINE [Concomitant]
  7. FERROUS SULFATE TAB [Concomitant]
  8. LISINOPRIL [Concomitant]
  9. SIMVASTATIN [Concomitant]
  10. JANUVIA [Concomitant]
  11. MAGNESIUM CHLORIDE [Concomitant]
  12. TRICOR [Concomitant]
  13. ALLOPURINOL [Concomitant]
  14. NEXIUM [Concomitant]
  15. ADVAIR HFA [Concomitant]
  16. SPIRIVA [Concomitant]
  17. OXYBUTYNIN CHLORIDE [Concomitant]

REACTIONS (1)
  - INTESTINAL PERFORATION [None]
